FAERS Safety Report 9118144 (Version 1)
Quarter: 2013Q1

REPORT INFORMATION
  Report Type: Report from Study
  Country: US (occurrence: US)
  Receive Date: 20130129
  Receipt Date: 20130129
  Transmission Date: 20140127
  Serious: No
  Sender: FDA-Public Use
  Company Number: US-ABBOTT-12P-163-0943719-00

PATIENT
  Sex: 0

DRUGS (2)
  1. HUMIRA 20 MG/0.4 ML PRE-FILLED SYRINGE [Suspect]
     Indication: JUVENILE IDIOPATHIC ARTHRITIS
     Route: 058
     Dates: end: 201206
  2. HUMIRA 20 MG/0.4 ML PRE-FILLED SYRINGE [Suspect]
     Route: 058
     Dates: start: 201206

REACTIONS (1)
  - Drug ineffective [Not Recovered/Not Resolved]
